FAERS Safety Report 8958728 (Version 3)
Quarter: 2012Q4

REPORT INFORMATION
  Report Type: 
  Country: DE (occurrence: DE)
  Receive Date: 20121211
  Receipt Date: 20121228
  Transmission Date: 20130627
  Serious: Yes (Other)
  Sender: FDA-Public Use
  Company Number: DE-B.I. PHARMACEUTICALS,INC./RIDGEFIELD-2012-DE-02997DE

PATIENT
  Sex: Female
  Weight: 60 kg

DRUGS (2)
  1. MICARDIS 80 MG [Suspect]
     Indication: HYPERTENSION
     Dosage: 80 mg
     Dates: start: 20121201, end: 20121208
  2. L-THYROX [Concomitant]

REACTIONS (2)
  - Depression [Recovered/Resolved]
  - Suicidal ideation [Recovered/Resolved]
